FAERS Safety Report 10689912 (Version 1)
Quarter: 2015Q1

REPORT INFORMATION
  Report Type: Spontaneous
  Country: US (occurrence: None)
  Receive Date: 20150102
  Receipt Date: 20150102
  Transmission Date: 20150720
  Serious: No
  Sender: FDA-Public Use
  Company Number: None

PATIENT
  Age: 20 Year
  Sex: Female
  Weight: 62.14 kg

DRUGS (1)
  1. LEVONORGESTREL. [Suspect]
     Active Substance: LEVONORGESTREL
     Indication: INTRA-UTERINE CONTRACEPTIVE DEVICE
     Dates: start: 20140107, end: 20141107

REACTIONS (4)
  - Body temperature increased [None]
  - Menstruation irregular [None]
  - Device dislocation [None]
  - Abdominal pain [None]

NARRATIVE: CASE EVENT DATE: 20140107
